FAERS Safety Report 9661647 (Version 1)
Quarter: 2013Q4

REPORT INFORMATION
  Report Type: Spontaneous
  Country: IT (occurrence: None)
  Receive Date: 20131030
  Receipt Date: 20131030
  Transmission Date: 20140711
  Serious: Yes (Hospitalization)
  Sender: FDA-Public Use
  Company Number: AUR-APL-2013-08886

PATIENT
  Age: 64 Year
  Sex: Male

DRUGS (1)
  1. AMOXICILLIN (AMOXICILLIN) [Suspect]
     Indication: PROPHYLAXIS
     Dosage: 5 DOSAGE FORMS, TOTAL, ORAL
     Route: 048

REACTIONS (4)
  - Chest pain [None]
  - Dyspnoea [None]
  - Abdominal pain upper [None]
  - Arteriogram coronary abnormal [None]
